FAERS Safety Report 17820687 (Version 1)
Quarter: 2020Q2

REPORT INFORMATION
  Report Type: Spontaneous
  Country: DK (occurrence: DK)
  Receive Date: 20200525
  Receipt Date: 20200525
  Transmission Date: 20200714
  Serious: Yes (Hospitalization)
  Sender: FDA-Public Use
  Company Number: DK-PFIZER INC-2020203630

PATIENT
  Age: 48 Year
  Sex: Female

DRUGS (14)
  1. PARACETAMOL [Concomitant]
     Active Substance: ACETAMINOPHEN
     Dosage: 500 MG
  2. OLOPATADINE. [Concomitant]
     Active Substance: OLOPATADINE
     Dosage: 1 MG/ML
     Dates: start: 20180425
  3. SALBUTAMOL [Concomitant]
     Active Substance: ALBUTEROL
     Dosage: UNK
     Dates: start: 20190526
  4. CALCIUM [CALCIUM;ERGOCALCIFEROL] [Concomitant]
     Dosage: UNK
     Dates: start: 20190529
  5. ZESSLY [Suspect]
     Active Substance: INFLIXIMAB
     Indication: ANKYLOSING SPONDYLITIS
     Dosage: 550 MG (8 DOSAGE IN WEEK)
     Route: 042
     Dates: start: 20190515, end: 20190904
  6. FORMOTEROL [Concomitant]
     Active Substance: FORMOTEROL
     Dosage: UNK
     Dates: start: 20150408
  7. IBUPROFEN. [Concomitant]
     Active Substance: IBUPROFEN
     Dosage: 400 MG
     Dates: start: 20190526
  8. AVAMYS [Concomitant]
     Active Substance: FLUTICASONE FUROATE
     Dosage: 27.5 UG
     Dates: start: 20190526
  9. VENLAFAXINE [Concomitant]
     Active Substance: VENLAFAXINE HYDROCHLORIDE
     Dosage: 75 MG
  10. FUROSEMIDE. [Concomitant]
     Active Substance: FUROSEMIDE
     Dosage: 40 MG
     Dates: start: 20190715, end: 20191023
  11. TIOTROPIUM [Concomitant]
     Active Substance: TIOTROPIUM
     Dosage: 2.5 UG
     Dates: start: 20150810
  12. DESLORATADINE. [Concomitant]
     Active Substance: DESLORATADINE
     Dosage: 5 MG
     Dates: start: 20180425
  13. MORPHINE [Concomitant]
     Active Substance: MORPHINE
     Dosage: 30 MG
     Dates: start: 20190719
  14. POTASSIUM CHLORIDE. [Concomitant]
     Active Substance: POTASSIUM CHLORIDE
     Dosage: 750 MG
     Dates: start: 20190715, end: 20191023

REACTIONS (2)
  - Pneumonia [Recovered/Resolved]
  - Endocarditis [Recovered/Resolved]

NARRATIVE: CASE EVENT DATE: 2019
